FAERS Safety Report 5218722-1 (Version None)
Quarter: 2007Q1

REPORT INFORMATION
  Report Type: 
  Country: None (occurrence: None)
  Receive Date: 20070122
  Receipt Date: 20070109
  Transmission Date: 20070707
  Serious: Yes (Hospitalization)
  Sender: FDA-Public Use
  Company Number: SU-2007-005774

PATIENT
  Sex: Male

DRUGS (1)
  1. BENICAR HCT [Suspect]
     Indication: BLOOD PRESSURE
     Dosage: 20.125 MG QD PO
     Route: 048

REACTIONS (1)
  - LOSS OF CONSCIOUSNESS [None]
